FAERS Safety Report 11451605 (Version 2)
Quarter: 2018Q1

REPORT INFORMATION
  Report Type: Report from Study
  Country: US (occurrence: US)
  Receive Date: 20150903
  Receipt Date: 20180115
  Transmission Date: 20180508
  Serious: Yes (Other)
  Sender: FDA-Public Use
  Company Number: US-ROCHE-1629254

PATIENT
  Sex: Female
  Weight: 33.92 kg

DRUGS (2)
  1. NUTROPIN AQ [Suspect]
     Active Substance: SOMATROPIN
     Indication: BODY HEIGHT BELOW NORMAL
     Route: 058
  2. MIRALAX [Concomitant]
     Active Substance: POLYETHYLENE GLYCOL 3350
     Indication: CONSTIPATION
     Dosage: 0.5 CAPFUL QDAY
     Route: 048

REACTIONS (7)
  - Oestradiol decreased [Unknown]
  - Dizziness [Unknown]
  - Blood follicle stimulating hormone decreased [Unknown]
  - Headache [Unknown]
  - Dyspnoea exertional [Unknown]
  - Constipation [Unknown]
  - Blood luteinising hormone decreased [Unknown]
